FAERS Safety Report 9426078 (Version 1)
Quarter: 2013Q3

REPORT INFORMATION
  Report Type: Report from Study
  Country: US (occurrence: US)
  Receive Date: 20130730
  Receipt Date: 20130730
  Transmission Date: 20140515
  Serious: Yes (Hospitalization)
  Sender: FDA-Public Use
  Company Number: US-BIOGENIDEC-2013BI066980

PATIENT
  Age: 38 Year
  Sex: Male
  Weight: 82 kg

DRUGS (11)
  1. TYSABRI [Suspect]
     Indication: MULTIPLE SCLEROSIS
     Route: 042
     Dates: start: 20080808
  2. IBUPROFEN [Concomitant]
     Route: 048
  3. CALCIUM CARBONATE [Concomitant]
     Route: 048
  4. MULTIVITAMIN [Concomitant]
     Route: 048
  5. ODANSETRON [Concomitant]
     Route: 048
  6. ZOLPIDEM [Concomitant]
     Route: 048
  7. METHYLPHENIDATE [Concomitant]
     Route: 048
  8. TAMSULOSIN [Concomitant]
     Route: 048
  9. TRAMADOL [Concomitant]
     Indication: PAIN
     Route: 048
  10. TADALAFIL [Concomitant]
     Indication: ERECTILE DYSFUNCTION
     Route: 048
  11. CHOLECALCIFEROL [Concomitant]

REACTIONS (1)
  - Calculus ureteric [Recovered/Resolved]
